FAERS Safety Report 10193695 (Version 1)
Quarter: 2014Q2

REPORT INFORMATION
  Report Type: Spontaneous
  Country: US (occurrence: US)
  Receive Date: 20140524
  Receipt Date: 20140524
  Transmission Date: 20141212
  Serious: No
  Sender: FDA-Public Use
  Company Number: US-SA-2014SA009639

PATIENT
  Age: 52 Year
  Sex: Female

DRUGS (3)
  1. LANTUS SOLOSTAR [Suspect]
     Dosage: DOSE:20 UNIT(S)
     Route: 058
     Dates: start: 2006
  2. LANTUS SOLOSTAR [Suspect]
     Dosage: DOSE:20 UNIT(S)
     Route: 058
     Dates: start: 2006
  3. SOLOSTAR [Concomitant]
     Dates: start: 2006

REACTIONS (1)
  - Visual impairment [Unknown]
